FAERS Safety Report 5811977-1 (Version None)
Quarter: 2008Q3

REPORT INFORMATION
  Report Type: 
  Country: None (occurrence: None)
  Receive Date: 20080714
  Receipt Date: 20080628
  Transmission Date: 20090109
  Serious: Yes (Other)
  Sender: FDA-Public Use
  Company Number: 2008S1000228

PATIENT
  Age: 70 Year
  Sex: Male

DRUGS (4)
  1. CUBICIN [Suspect]
     Indication: SUBACUTE ENDOCARDITIS
     Dosage: 350 MG;Q24H; IV
     Route: 042
     Dates: start: 20070705
  2. VANCOMYCIN HCL [Concomitant]
  3. RIFAMPICIN [Concomitant]
  4. GENTAMICIN [Concomitant]

REACTIONS (4)
  - BLOOD CREATININE INCREASED [None]
  - C-REACTIVE PROTEIN INCREASED [None]
  - IMPLANTABLE DEFIBRILLATOR REMOVAL [None]
  - TRICUSPID VALVE REPAIR [None]
